FAERS Safety Report 12224304 (Version 2)
Quarter: 2016Q2

REPORT INFORMATION
  Report Type: Spontaneous
  Country: DE (occurrence: DE)
  Receive Date: 20160331
  Receipt Date: 20160610
  Transmission Date: 20160815
  Serious: No
  Sender: FDA-Public Use
  Company Number: DE-ALLERGAN-1652232US

PATIENT
  Sex: Female
  Weight: 50 kg

DRUGS (2)
  1. ESMYA [Suspect]
     Active Substance: ULIPRISTAL ACETATE
     Indication: UTERINE LEIOMYOMA
     Dosage: UNK
  2. ESMYA [Suspect]
     Active Substance: ULIPRISTAL ACETATE
     Dosage: UNK

REACTIONS (1)
  - Food poisoning [Recovered/Resolved]
